APPROVED DRUG PRODUCT: AMMONIA N 13
Active Ingredient: AMMONIA N-13
Strength: 30mCi-300mCi (3.75-37.5mCi/ML)
Dosage Form/Route: INJECTABLE;INTRAVENOUS
Application: A204510 | Product #001 | TE Code: AP
Applicant: PETNET SOLUTIONS INC
Approved: Nov 2, 2015 | RLD: No | RS: No | Type: RX